FAERS Safety Report 7360777-2 (Version None)
Quarter: 2011Q1

REPORT INFORMATION
  Report Type: 
  Country: None (occurrence: None)
  Receive Date: 20110318
  Receipt Date: 20110315
  Transmission Date: 20110831
  Serious: Yes (Hospitalization)
  Sender: FDA-Public Use
  Company Number: JP-PFIZER INC-2011058260

PATIENT

DRUGS (1)
  1. NORVASC [Suspect]

REACTIONS (3)
  - URINARY RETENTION [None]
  - BLOOD PRESSURE DECREASED [None]
  - OVERDOSE [None]
